FAERS Safety Report 6171637-7 (Version None)
Quarter: 2009Q2

REPORT INFORMATION
  Report Type: 
  Country: None (occurrence: None)
  Receive Date: 20090428
  Receipt Date: 20090428
  Transmission Date: 20091009
  Serious: No
  Sender: FDA-Public Use
  Company Number: None

PATIENT
  Sex: Female
  Weight: 73.18 kg

DRUGS (4)
  1. FLEXERIL [Suspect]
     Dosage: 5MG TABLET TID ORAL
     Route: 048
     Dates: start: 20090423, end: 20090427
  2. CLINDAMYCIN HCL [Concomitant]
  3. IBUPROFEN [Suspect]
  4. PATANOL (CLOPATADINE [Concomitant]

REACTIONS (1)
  - ANXIETY [None]
